FAERS Safety Report 4344148-9 (Version None)
Quarter: 2004Q2

REPORT INFORMATION
  Report Type: 
  Country: None (occurrence: None)
  Receive Date: 20040422
  Receipt Date: 20040209
  Transmission Date: 20050107
  Serious: Yes (Other)
  Sender: FDA-Public Use
  Company Number: PHBS2004NL01964

PATIENT
  Age: 44 Year
  Sex: Female

DRUGS (6)
  1. CLOZAPINE [Suspect]
     Indication: HUNTINGTON'S CHOREA
     Dosage: 12.5 MG/D
     Route: 065
  2. CLOZAPINE [Suspect]
     Dosage: 175 MG/D
     Route: 065
  3. DIAZEPAM [Concomitant]
     Dosage: 2 MG, TID
     Route: 065
  4. HALOPERIDOL [Concomitant]
     Dosage: 10 MG, TID
     Route: 065
  5. IBUPROFEN [Concomitant]
     Dosage: 200 MG, TID
     Route: 065
  6. PANTOZOL [Concomitant]
     Dosage: 40 MG/D
     Route: 065

REACTIONS (2)
  - COMA [None]
  - THERAPEUTIC AGENT TOXICITY [None]
